FAERS Safety Report 4489869-2 (Version None)
Quarter: 2004Q4

REPORT INFORMATION
  Report Type: 
  Country: None (occurrence: None)
  Receive Date: 20041101
  Receipt Date: 20041028
  Transmission Date: 20050328
  Serious: Yes (Death)
  Sender: FDA-Public Use
  Company Number: PHFR2004GB03975

PATIENT
  Age: 24 Year
  Sex: Male

DRUGS (2)
  1. MELLARIL [Suspect]
     Indication: SCHIZOPHRENIA
     Dosage: 800MG/DAY
     Route: 065
  2. MELLARIL [Suspect]
     Dosage: 1200MG/DAY
     Route: 065

REACTIONS (1)
  - CHOKING [None]
